FAERS Safety Report 4501327-5 (Version None)
Quarter: 2004Q4

REPORT INFORMATION
  Report Type: 
  Country: None (occurrence: None)
  Receive Date: 20041109
  Receipt Date: 20041029
  Transmission Date: 20050328
  Serious: Yes (Death)
  Sender: FDA-Public Use
  Company Number: 209172

PATIENT
  Age: 77 Year
  Sex: 0

DRUGS (7)
  1. RITUXAN [Suspect]
     Indication: NON-HODGKIN'S LYMPHOMA
     Dosage: 580 MG, 3/WEEK, INTRAVENOUS
     Route: 042
     Dates: start: 20040519, end: 20040722
  2. ALLOPURINOL [Concomitant]
  3. FLUCONAZOLE [Concomitant]
  4. CYCLOPHOSPHAMIDE [Concomitant]
  5. DOXORUBICIN (DOXORUICIN, DOXORUBICIN HYDROCHLORIDE) [Concomitant]
  6. VINCRISTINE SULFATE [Concomitant]
  7. PREDNISONE [Concomitant]

REACTIONS (1)
  - STEVENS-JOHNSON SYNDROME [None]
